FAERS Safety Report 23597081 (Version 1)
Quarter: 2024Q1

REPORT INFORMATION
  Report Type: Spontaneous
  Country: CN (occurrence: CN)
  Receive Date: 20240305
  Receipt Date: 20240305
  Transmission Date: 20240410
  Serious: Yes (Hospitalization, Other)
  Sender: FDA-Public Use
  Company Number: CN-SA-SAC20240305000118

PATIENT
  Age: 75 Year
  Sex: Male

DRUGS (2)
  1. CLOPIDOGREL BISULFATE [Suspect]
     Active Substance: CLOPIDOGREL BISULFATE
     Indication: Cerebral infarction
     Dosage: DOSE 75.000000 DOSE UNIT MG NUMBER OF USE 1 DAY NUMBER OF USE 1
     Route: 048
     Dates: start: 20220414, end: 20240228
  2. ATORVASTATIN [Concomitant]
     Active Substance: ATORVASTATIN
     Dosage: 20 MG, QD
     Route: 048
     Dates: start: 2022

REACTIONS (7)
  - Hyperinsulinaemia [Recovering/Resolving]
  - Type 2 diabetes mellitus [Unknown]
  - Starvation [Recovering/Resolving]
  - Hyperphagia [Recovering/Resolving]
  - Palpitations [Recovering/Resolving]
  - Bulimia nervosa [Recovering/Resolving]
  - Hunger [Recovering/Resolving]

NARRATIVE: CASE EVENT DATE: 20230101
